FAERS Safety Report 15611768 (Version 3)
Quarter: 2022Q1

REPORT INFORMATION
  Report Type: Spontaneous
  Country: ES (occurrence: ES)
  Receive Date: 20181113
  Receipt Date: 20220104
  Transmission Date: 20220423
  Serious: Yes (Hospitalization, Other)
  Sender: FDA-Public Use
  Company Number: ES-002147023-PHHY2018ES144722

PATIENT

DRUGS (6)
  1. RUXOLITINIB [Suspect]
     Active Substance: RUXOLITINIB
     Indication: Myelofibrosis
     Dosage: 5 MG, Q12H
     Route: 065
     Dates: start: 201609, end: 201703
  2. RUXOLITINIB [Suspect]
     Active Substance: RUXOLITINIB
     Indication: Polycythaemia vera
     Dosage: 20 MG, Q12H
     Route: 065
     Dates: start: 201703, end: 201811
  3. RUXOLITINIB [Suspect]
     Active Substance: RUXOLITINIB
     Dosage: 10 MG, Q12H
     Route: 048
     Dates: start: 201811, end: 20190212
  4. RUXOLITINIB [Suspect]
     Active Substance: RUXOLITINIB
     Dosage: 10 MG, Q12H
     Route: 048
     Dates: start: 20190212
  5. RUXOLITINIB [Suspect]
     Active Substance: RUXOLITINIB
     Dosage: 10-12 HOURS
     Route: 065
  6. HYDREA [Concomitant]
     Active Substance: HYDROXYUREA
     Indication: Product used for unknown indication
     Dosage: UNK
     Route: 065
     Dates: start: 201806

REACTIONS (9)
  - Anal cancer [Unknown]
  - Tracheal neoplasm [Unknown]
  - Basal cell carcinoma [Unknown]
  - Platelet count increased [Unknown]
  - Benign tracheal neoplasm [Unknown]
  - Leishmaniasis [Unknown]
  - Tracheal injury [Unknown]
  - Rectal haemorrhage [Unknown]
  - Tracheal stenosis [Unknown]

NARRATIVE: CASE EVENT DATE: 20190101
